FAERS Safety Report 12909976 (Version 1)
Quarter: 2016Q4

REPORT INFORMATION
  Report Type: Spontaneous
  Country: CN (occurrence: CN)
  Receive Date: 20161104
  Receipt Date: 20161104
  Transmission Date: 20170207
  Serious: Yes (Other)
  Sender: FDA-Public Use
  Company Number: CN-ROCHE-1849113

PATIENT
  Age: 74 Year
  Sex: Male
  Weight: 63 kg

DRUGS (5)
  1. SODIUM CHLORIDE. [Suspect]
     Active Substance: SODIUM CHLORIDE
     Indication: INFECTION
     Route: 041
     Dates: start: 20160714, end: 20160725
  2. BENZBROMARONE [Suspect]
     Active Substance: BENZBROMARONE
     Indication: HYPERURICAEMIA
     Route: 048
     Dates: start: 20160713, end: 20160725
  3. LATAMOXEF SODIUM [Concomitant]
     Indication: INFECTION
     Route: 040
     Dates: start: 20160711, end: 20160713
  4. ROCEPHIN [Suspect]
     Active Substance: CEFTRIAXONE SODIUM
     Indication: INFECTION
     Route: 041
     Dates: start: 20160714, end: 20160725
  5. MOXIFLOXACIN HYDROCHLORIDE. [Suspect]
     Active Substance: MOXIFLOXACIN HYDROCHLORIDE
     Indication: INFECTION
     Route: 041
     Dates: start: 20160714, end: 20160725

REACTIONS (1)
  - Gout [Recovering/Resolving]

NARRATIVE: CASE EVENT DATE: 20160724
